FAERS Safety Report 8267939-0 (Version None)
Quarter: 2012Q2

REPORT INFORMATION
  Report Type: 
  Country: None (occurrence: None)
  Receive Date: 20120409
  Receipt Date: 20120329
  Transmission Date: 20120825
  Serious: Yes (Other)
  Sender: FDA-Public Use
  Company Number: PHHY2012JP017111

PATIENT
  Age: 79 Year
  Sex: Male

DRUGS (4)
  1. ONBREZ [Suspect]
     Dates: start: 20120222
  2. SPIRIVA [Concomitant]
     Indication: CHRONIC OBSTRUCTIVE PULMONARY DISEASE
  3. ONBREZ [Suspect]
     Indication: CHRONIC OBSTRUCTIVE PULMONARY DISEASE
     Dosage: 150 UG, QD
     Dates: start: 20120206, end: 20120213
  4. SEREVENT [Concomitant]

REACTIONS (5)
  - SUPRAVENTRICULAR TACHYCARDIA [None]
  - DYSPNOEA [None]
  - SENSATION OF FOREIGN BODY [None]
  - OROPHARYNGEAL DISCOMFORT [None]
  - COUGH [None]
